FAERS Safety Report 19504162 (Version 1)
Quarter: 2021Q3

REPORT INFORMATION
  Report Type: Report from Study
  Country: RU (occurrence: RU)
  Receive Date: 20210707
  Receipt Date: 20210707
  Transmission Date: 20211014
  Serious: Yes (Death, Hospitalization)
  Sender: FDA-Public Use
  Company Number: RU-JNJFOC-20200529954

PATIENT
  Age: 69 Year
  Sex: Male
  Weight: 75 kg

DRUGS (3)
  1. JNJ?63723283 [Suspect]
     Active Substance: CETRELIMAB
     Indication: TRANSITIONAL CELL CARCINOMA
     Route: 042
     Dates: start: 20200303, end: 20200506
  2. ATENOLOL. [Concomitant]
     Active Substance: ATENOLOL
  3. ERDAFITINIB. [Suspect]
     Active Substance: ERDAFITINIB
     Indication: TRANSITIONAL CELL CARCINOMA
     Route: 048
     Dates: start: 20200303, end: 20200519

REACTIONS (2)
  - Respiratory failure [Fatal]
  - Epididymitis [Recovered/Resolved]

NARRATIVE: CASE EVENT DATE: 20200524
